FAERS Safety Report 8686242 (Version 2)
Quarter: 2012Q4

REPORT INFORMATION
  Report Type: 
  Country: US (occurrence: US)
  Receive Date: 20120726
  Receipt Date: 20121213
  Transmission Date: 20130627
  Serious: No
  Sender: FDA-Public Use
  Company Number: US-ASTRAZENECA-2011SE60807

PATIENT
  Age: 40 Year
  Sex: Female
  Weight: 56.2 kg

DRUGS (3)
  1. SEROQUEL [Suspect]
     Indication: DEPRESSION
     Route: 048
     Dates: start: 2005
  2. SEROQUEL [Suspect]
     Indication: BIPOLAR DISORDER
     Route: 048
     Dates: start: 2005
  3. ALPRAZOLAM [Concomitant]
     Indication: BIPOLAR DISORDER

REACTIONS (8)
  - Nausea [Unknown]
  - Insomnia [Unknown]
  - Condition aggravated [Unknown]
  - Malaise [Unknown]
  - Heart rate increased [Unknown]
  - Vomiting [Unknown]
  - Drug withdrawal syndrome [Unknown]
  - Drug dose omission [Unknown]
